FAERS Safety Report 13741313 (Version 2)
Quarter: 2017Q3

REPORT INFORMATION
  Report Type: Report from Study
  Country: None (occurrence: FR)
  Receive Date: 20170711
  Receipt Date: 20170831
  Transmission Date: 20171127
  Serious: Yes (Hospitalization, Other)
  Sender: FDA-Public Use
  Company Number: FR-ABBVIE-17K-056-2033641-00

PATIENT
  Age: 68 Year
  Sex: Male
  Weight: 64 kg

DRUGS (1)
  1. DUODOPA [Suspect]
     Active Substance: CARBIDOPA\LEVODOPA
     Indication: PARKINSON^S DISEASE
     Dosage: CONTINUOUS FLOW RATE(DURING THE DAY):3.3 MILILITER/HOUR 5 AM TO 9 PM; ED: 1.0 MILILITER
     Route: 050
     Dates: start: 201612

REACTIONS (5)
  - Dyskinesia [Not Recovered/Not Resolved]
  - Weight increased [Unknown]
  - Gastric infection [Unknown]
  - Weight decreased [Recovered/Resolved]
  - Mouth ulceration [Not Recovered/Not Resolved]
